FAERS Safety Report 19058907 (Version 1)
Quarter: 2021Q1

REPORT INFORMATION
  Report Type: Report from Study
  Country: CA (occurrence: CA)
  Receive Date: 20210325
  Receipt Date: 20210325
  Transmission Date: 20210420
  Serious: Yes (Other)
  Sender: FDA-Public Use
  Company Number: CA-JNJFOC-20210341669

PATIENT
  Age: 13 Year
  Sex: Male
  Weight: 61.4 kg

DRUGS (2)
  1. REMICADE [Suspect]
     Active Substance: INFLIXIMAB
     Dosage: ON 19?MAR?2021, THE PATIENT RECEIVE 6TH INFLIXIMAB INFUSION AT DOSE OF 600 MG. (1 EVERY 4 WEEK)
     Route: 042
     Dates: start: 20210319
  2. REMICADE [Suspect]
     Active Substance: INFLIXIMAB
     Indication: COLITIS ULCERATIVE
     Route: 042
     Dates: start: 20201113

REACTIONS (5)
  - Haematochezia [Not Recovered/Not Resolved]
  - Vomiting [Unknown]
  - Frequent bowel movements [Not Recovered/Not Resolved]
  - General physical health deterioration [Unknown]
  - Diarrhoea [Not Recovered/Not Resolved]

NARRATIVE: CASE EVENT DATE: 20210318
